FAERS Safety Report 9982197 (Version 2)
Quarter: 2015Q1

REPORT INFORMATION
  Report Type: Report from Study
  Country: US (occurrence: US)
  Receive Date: 20140307
  Receipt Date: 20150216
  Transmission Date: 20150721
  Serious: No
  Sender: FDA-Public Use
  Company Number: US-ABBVIE-13P-163-1177960-00

PATIENT
  Age: 42 Year
  Sex: Female

DRUGS (4)
  1. HUMIRA [Suspect]
     Active Substance: ADALIMUMAB
     Route: 058
     Dates: start: 20131128, end: 20131128
  2. ASACOL HD [Concomitant]
     Active Substance: MESALAMINE
     Indication: COLITIS ULCERATIVE
  3. HUMIRA [Suspect]
     Active Substance: ADALIMUMAB
     Indication: COLITIS ULCERATIVE
     Route: 058
     Dates: start: 20131114, end: 20131114
  4. HUMIRA [Suspect]
     Active Substance: ADALIMUMAB
     Route: 058
     Dates: start: 20131212

REACTIONS (3)
  - Injection site warmth [Recovered/Resolved]
  - Injection site erythema [Recovered/Resolved]
  - Injection site swelling [Recovered/Resolved]

NARRATIVE: CASE EVENT DATE: 20131128
